FAERS Safety Report 20852414 (Version 1)
Quarter: 2022Q2

REPORT INFORMATION
  Report Type: Spontaneous
  Country: US (occurrence: US)
  Receive Date: 20220520
  Receipt Date: 20220520
  Transmission Date: 20220721
  Serious: Yes (Other)
  Sender: FDA-Public Use
  Company Number: US-ORGANON-O2205USA001489

PATIENT
  Sex: Female

DRUGS (1)
  1. SINGULAIR [Suspect]
     Active Substance: MONTELUKAST SODIUM
     Dosage: 10MG EVERY NIGHT BEFORE BED
     Route: 048
     Dates: start: 2020

REACTIONS (8)
  - Suicidal ideation [Unknown]
  - Amnesia [Unknown]
  - Confusional state [Unknown]
  - Tremor [Unknown]
  - Muscle twitching [Unknown]
  - Insomnia [Unknown]
  - Disorientation [Unknown]
  - Depression [Unknown]

NARRATIVE: CASE EVENT DATE: 20200101
